FAERS Safety Report 7632676-X (Version None)
Quarter: 2011Q3

REPORT INFORMATION
  Report Type: 
  Country: None (occurrence: None)
  Receive Date: 20110725
  Receipt Date: 20101123
  Transmission Date: 20111222
  Serious: Yes (Hospitalization)
  Sender: FDA-Public Use
  Company Number: US-BRISTOL-MYERS SQUIBB COMPANY-15402829

PATIENT
  Age: 53 Year
  Sex: Female
  Weight: 80 kg

DRUGS (3)
  1. COUMADIN [Suspect]
     Indication: DEEP VEIN THROMBOSIS
     Dosage: DURATION:OVER A MONTH
     Dates: start: 20100101
  2. FOLIC ACID [Concomitant]
  3. NORVASC [Concomitant]

REACTIONS (1)
  - VAGINAL HAEMORRHAGE [None]
